FAERS Safety Report 9403743 (Version 1)
Quarter: 2013Q3

REPORT INFORMATION
  Report Type: Spontaneous
  Country: US (occurrence: None)
  Receive Date: 20130715
  Receipt Date: 20130715
  Transmission Date: 20140515
  Serious: Yes (Life-Threatening, Hospitalization)
  Sender: FDA-Public Use
  Company Number: None

PATIENT
  Age: 85 Year
  Sex: Male
  Weight: 94.1 kg

DRUGS (3)
  1. ZOLPIDEM [Suspect]
     Indication: DEPRESSION
     Dosage: 10 MG ONCE PO
     Route: 048
     Dates: start: 20130624, end: 20130624
  2. ZOLPIDEM [Suspect]
     Indication: DIABETES MELLITUS
     Dosage: 10 MG ONCE PO
     Route: 048
     Dates: start: 20130624, end: 20130624
  3. ZOLPIDEM [Suspect]
     Indication: INSOMNIA
     Dosage: 10 MG ONCE PO
     Route: 048
     Dates: start: 20130624, end: 20130624

REACTIONS (4)
  - Swollen tongue [None]
  - Lethargy [None]
  - Anaphylactic reaction [None]
  - Angioedema [None]
